FAERS Safety Report 10207009 (Version 1)
Quarter: 2014Q2

REPORT INFORMATION
  Report Type: Spontaneous
  Country: US (occurrence: None)
  Receive Date: 20140528
  Receipt Date: 20140528
  Transmission Date: 20141212
  Serious: Yes (Hospitalization)
  Sender: FDA-Public Use
  Company Number: None

PATIENT
  Age: 64 Year
  Sex: Female
  Weight: 98.9 kg

DRUGS (13)
  1. PRECEDEX [Suspect]
     Indication: SEDATION
     Dosage: 0.2-0.4 MCG/KG/HR?CONTINUOUS ?INTRAVENOUS
     Route: 042
     Dates: start: 20140324, end: 20140327
  2. INSULIN LISPRO (HUMALOG) [Concomitant]
  3. INSULIN GLARGINE (LANTUS) [Concomitant]
  4. CARVEDILOL (COREG) [Concomitant]
  5. PIPERACILLIN-TAZOBACTAM (ZOSYN) [Concomitant]
  6. FAMOTIDINE (PEPCID) [Concomitant]
  7. ASPIRIN [Concomitant]
  8. CLOPIDOGREL (PRAVIX) [Concomitant]
  9. GEMFIBROZIL (LOPID) [Concomitant]
  10. LEVOTHYROXINE (LEVOTHROID, SYNTHROID) [Concomitant]
  11. HEPARIN [Concomitant]
  12. LORAZEPAM (ATIVAN) [Concomitant]
  13. METOPROLOL TARTRATE (LOPRESSOR) [Concomitant]

REACTIONS (4)
  - Unresponsive to stimuli [None]
  - Aspartate aminotransferase increased [None]
  - Alanine aminotransferase increased [None]
  - Blood alkaline phosphatase increased [None]
